FAERS Safety Report 18696717 (Version 1)
Quarter: 2021Q1

REPORT INFORMATION
  Report Type: Other
  Country: US (occurrence: US)
  Receive Date: 20210104
  Receipt Date: 20210104
  Transmission Date: 20210419
  Serious: No
  Sender: FDA-Public Use
  Company Number: US-ROCHE-2604581

PATIENT
  Age: 67 Year
  Sex: Male

DRUGS (5)
  1. AMPICILLIN/SULBACTAM [Concomitant]
     Active Substance: AMPICILLIN SODIUM\SULBACTAM SODIUM
     Indication: COVID-19
  2. HEPARIN [Concomitant]
     Active Substance: HEPARIN SODIUM
     Route: 041
  3. HYDROXYCHLOROQUINE [Concomitant]
     Active Substance: HYDROXYCHLOROQUINE
     Indication: COVID-19
  4. NITRIC OXIDE. [Concomitant]
     Active Substance: NITRIC OXIDE
  5. ALTEPLASE. [Suspect]
     Active Substance: ALTEPLASE
     Indication: COVID-19
     Route: 040

REACTIONS (3)
  - No adverse event [Unknown]
  - Intentional product use issue [Unknown]
  - Off label use [Unknown]
